FAERS Safety Report 20405460 (Version 2)
Quarter: 2022Q1

REPORT INFORMATION
  Report Type: Report from Study
  Country: US (occurrence: US)
  Receive Date: 20220131
  Receipt Date: 20220318
  Transmission Date: 20220423
  Serious: Yes (Other)
  Sender: FDA-Public Use
  Company Number: US-NOVARTISPH-NVSC2022US018314

PATIENT
  Sex: Female

DRUGS (1)
  1. XIIDRA [Suspect]
     Active Substance: LIFITEGRAST
     Indication: Sjogren^s syndrome
     Dosage: UNK
     Route: 047

REACTIONS (4)
  - Immunodeficiency [Not Recovered/Not Resolved]
  - Eye pain [Unknown]
  - Eye irritation [Unknown]
  - Dry eye [Unknown]
